FAERS Safety Report 9316856 (Version 1)
Quarter: 2013Q2

REPORT INFORMATION
  Report Type: Spontaneous
  Country: US (occurrence: US)
  Receive Date: 20130530
  Receipt Date: 20130530
  Transmission Date: 20140414
  Serious: No
  Sender: FDA-Public Use
  Company Number: US-NOVEN-12US004454

PATIENT
  Age: 6 Year
  Sex: Female
  Weight: 21.77 kg

DRUGS (3)
  1. DAYTRANA [Suspect]
     Indication: ATTENTION DEFICIT/HYPERACTIVITY DISORDER
     Dosage: 15 MG, UNK
     Route: 062
     Dates: start: 201203
  2. DAYTRANA [Suspect]
     Dosage: 10 MG, UNK
  3. SINGULAIR [Concomitant]
     Indication: HYPERSENSITIVITY
     Dosage: 4 MG, UNK
     Route: 048

REACTIONS (4)
  - Application site urticaria [Not Recovered/Not Resolved]
  - Application site erythema [Not Recovered/Not Resolved]
  - Application site pruritus [Not Recovered/Not Resolved]
  - Drug administered at inappropriate site [Not Recovered/Not Resolved]
